FAERS Safety Report 9648579 (Version 1)
Quarter: 2013Q4

REPORT INFORMATION
  Report Type: Spontaneous
  Country: US (occurrence: None)
  Receive Date: 20131025
  Receipt Date: 20131025
  Transmission Date: 20140711
  Serious: No
  Sender: FDA-Public Use
  Company Number: None

PATIENT
  Age: 49 Year
  Sex: Female
  Weight: 80.74 kg

DRUGS (1)
  1. SYNTHROID 100MCG ABBOTT [Suspect]
     Dosage: 1 ONCE DAILY TAKEN BY MOUTH
     Route: 048
     Dates: start: 20130905, end: 20131024

REACTIONS (9)
  - Weight increased [None]
  - Local swelling [None]
  - Local swelling [None]
  - Joint swelling [None]
  - Arthralgia [None]
  - Gastric dilatation [None]
  - Paraesthesia [None]
  - Insomnia [None]
  - Pain in extremity [None]
